FAERS Safety Report 9479032 (Version 1)
Quarter: 2013Q3

REPORT INFORMATION
  Report Type: Spontaneous
  Country: US (occurrence: US)
  Receive Date: 20130827
  Receipt Date: 20130827
  Transmission Date: 20140515
  Serious: No
  Sender: FDA-Public Use
  Company Number: US-BAYER-2013-103425

PATIENT
  Age: 66 Year
  Sex: Female
  Weight: 113.38 kg

DRUGS (8)
  1. ALEVE CAPLET [Suspect]
     Dosage: 2 DF, QD
     Route: 048
     Dates: start: 2012
  2. PRILOSEC [Concomitant]
  3. ALENDRONATE SODIUM [Concomitant]
  4. BUPROPION HYDROCHLORIDE [Concomitant]
  5. ZOLPIDEM TARTRATE [Concomitant]
  6. ESCITALOPRAM OXALATE [Concomitant]
  7. CLONAZEPAM [Concomitant]
  8. OLANZAPINE [Concomitant]

REACTIONS (2)
  - Drug ineffective [None]
  - Incorrect drug administration duration [None]
